FAERS Safety Report 7488844-3 (Version None)
Quarter: 2011Q2

REPORT INFORMATION
  Report Type: 
  Country: None (occurrence: None)
  Receive Date: 20110518
  Receipt Date: 20110504
  Transmission Date: 20111010
  Serious: Yes (Other)
  Sender: FDA-Public Use
  Company Number: DE-JNJFOC-20110504796

PATIENT
  Sex: Male

DRUGS (2)
  1. ROGAINE [Suspect]
     Route: 061
  2. ROGAINE [Suspect]
     Indication: PRODUCT USED FOR UNKNOWN INDICATION
     Route: 061

REACTIONS (1)
  - NEUROPATHY PERIPHERAL [None]
